FAERS Safety Report 7617657-4 (Version None)
Quarter: 2011Q3

REPORT INFORMATION
  Report Type: 
  Country: None (occurrence: None)
  Receive Date: 20110718
  Receipt Date: 20110704
  Transmission Date: 20111222
  Serious: Yes (Congenital Anomaly)
  Sender: FDA-Public Use
  Company Number: GB-MYLANLABS-2011S1001110

PATIENT
  Age: 1 Hour
  Sex: Female
  Weight: 1.37 kg

DRUGS (3)
  1. INFLIXIMAB [Suspect]
     Route: 064
  2. AZATHIOPRINE [Suspect]
     Route: 064
  3. FOLIC ACID [Concomitant]
     Indication: PRODUCT USED FOR UNKNOWN INDICATION
     Route: 064
     Dates: start: 20100601

REACTIONS (5)
  - SYNDACTYLY [None]
  - MATERNAL EXPOSURE DURING PREGNANCY [None]
  - PREMATURE BABY [None]
  - MATERNAL DRUGS AFFECTING FOETUS [None]
  - NEUTROPENIA [None]
